FAERS Safety Report 11890137 (Version 1)
Quarter: 2016Q1

REPORT INFORMATION
  Report Type: Spontaneous
  Country: SI (occurrence: SI)
  Receive Date: 20160105
  Receipt Date: 20160105
  Transmission Date: 20160526
  Serious: Yes (Hospitalization)
  Sender: FDA-Public Use
  Company Number: PHHY2015SI169856

PATIENT
  Age: 54 Year
  Sex: Female

DRUGS (4)
  1. AGLURAB [Concomitant]
     Indication: PRODUCT USED FOR UNKNOWN INDICATION
  2. NALGESIN S//NAPROXEN [Concomitant]
     Indication: PRODUCT USED FOR UNKNOWN INDICATION
     Route: 065
  3. PRENEWEL [Concomitant]
     Indication: PRODUCT USED FOR UNKNOWN INDICATION
     Route: 065
  4. OSPAMOX [Suspect]
     Active Substance: AMOXICILLIN
     Indication: OTITIS MEDIA
     Dosage: 1000 MG, TID
     Route: 048
     Dates: start: 20151127, end: 20151201

REACTIONS (2)
  - Oedema [Recovered/Resolved]
  - Urticaria [Recovered/Resolved]

NARRATIVE: CASE EVENT DATE: 20151201
